FAERS Safety Report 5355475-0 (Version None)
Quarter: 2007Q2

REPORT INFORMATION
  Report Type: 
  Country: None (occurrence: None)
  Receive Date: 20070530
  Receipt Date: 20061204
  Transmission Date: 20071010
  Serious: Yes (Hospitalization)
  Sender: FDA-Public Use
  Company Number: US200609001974

PATIENT
  Age: 49 Year
  Sex: Male
  Weight: 117.9 kg

DRUGS (2)
  1. ZYPREXA [Suspect]
     Dosage: 100 MG
     Dates: start: 20010101, end: 20020101
  2. QUETIAPINE FUMARATE [Concomitant]

REACTIONS (3)
  - BLOOD GLUCOSE ABNORMAL [None]
  - DIABETES MELLITUS [None]
  - HYPERGLYCAEMIA [None]
